FAERS Safety Report 25453810 (Version 1)
Quarter: 2025Q2

REPORT INFORMATION
  Report Type: Spontaneous
  Country: US (occurrence: US)
  Receive Date: 20250619
  Receipt Date: 20250619
  Transmission Date: 20250717
  Serious: No
  Sender: ABBVIE
  Company Number: US-ABBVIE-6326790

PATIENT

DRUGS (1)
  1. TEFLARO [Suspect]
     Active Substance: CEFTAROLINE FOSAMIL
     Indication: Osteomyelitis
     Route: 042

REACTIONS (1)
  - Off label use [Unknown]
